FAERS Safety Report 7357004-9 (Version None)
Quarter: 2011Q1

REPORT INFORMATION
  Report Type: 
  Country: None (occurrence: None)
  Receive Date: 20110317
  Receipt Date: 20110310
  Transmission Date: 20110831
  Serious: No
  Sender: FDA-Public Use
  Company Number: US-TEVA-271084USA

PATIENT
  Sex: Female
  Weight: 65.83 kg

DRUGS (1)
  1. ALBUTEROL SULFATE AUTOHALER [Suspect]
     Dosage: 2 PUFFS
     Route: 055
     Dates: start: 20110309

REACTIONS (3)
  - PRODUCTIVE COUGH [None]
  - RETCHING [None]
  - COUGH [None]
